FAERS Safety Report 26174453 (Version 1)
Quarter: 2025Q4

REPORT INFORMATION
  Report Type: Spontaneous
  Country: EU (occurrence: EU)
  Receive Date: 20251218
  Receipt Date: 20251218
  Transmission Date: 20260118
  Serious: Yes (Hospitalization, Other)
  Sender: AUROBINDO
  Company Number: EU-AFSSAPS-SE2025001061

PATIENT
  Age: 75 Year
  Sex: Male

DRUGS (4)
  1. GABAPENTIN [Suspect]
     Active Substance: GABAPENTIN
     Indication: Neuralgia
     Dosage: 1.6 GRAM, ONCE A DAY
     Route: 065
     Dates: start: 202407, end: 20250316
  2. GABAPENTIN [Suspect]
     Active Substance: GABAPENTIN
     Dosage: 2.4 GRAM, ONCE A DAY
     Route: 065
     Dates: start: 20250317, end: 20250324
  3. GABAPENTIN [Suspect]
     Active Substance: GABAPENTIN
     Dosage: 3 GRAM, ONCE A DAY
     Route: 065
     Dates: start: 20250325, end: 20250327
  4. GABAPENTIN [Suspect]
     Active Substance: GABAPENTIN
     Dosage: 3.6 GRAM, ONCE A DAY
     Route: 065
     Dates: start: 20250328, end: 20251127

REACTIONS (1)
  - Pancreatitis acute [Recovering/Resolving]

NARRATIVE: CASE EVENT DATE: 20251125
